FAERS Safety Report 12222751 (Version 1)
Quarter: 2016Q1

REPORT INFORMATION
  Report Type: Spontaneous
  Country: SE (occurrence: SE)
  Receive Date: 20160330
  Receipt Date: 20160330
  Transmission Date: 20160526
  Serious: Yes (Other)
  Sender: FDA-Public Use
  Company Number: US-ASTRAZENECA-2016SE33454

PATIENT
  Age: 21 Month
  Sex: Female

DRUGS (1)
  1. SYNAGIS [Suspect]
     Active Substance: PALIVIZUMAB
     Indication: ANTIVIRAL PROPHYLAXIS
     Dosage: DOSE NUMBER 3. 100 MG + 50 MG. 1.38 ML DIVIDED IN TWO DOSES IN EACH THIGH
     Route: 030
     Dates: start: 20160210, end: 20160210

REACTIONS (2)
  - Tonsillitis streptococcal [Unknown]
  - Otitis media acute [Unknown]

NARRATIVE: CASE EVENT DATE: 20160212
